FAERS Safety Report 15843773 (Version 2)
Quarter: 2019Q1

REPORT INFORMATION
  Report Type: Spontaneous
  Country: US (occurrence: US)
  Receive Date: 20190118
  Receipt Date: 20190124
  Transmission Date: 20190417
  Serious: No
  Sender: FDA-Public Use
  Company Number: US-ELI_LILLY_AND_COMPANY-US201901007691

PATIENT
  Sex: Female

DRUGS (1)
  1. FORTEO [Suspect]
     Active Substance: TERIPARATIDE
     Indication: OSTEOPOROSIS
     Dosage: UNK, UNKNOWN
     Route: 058
     Dates: start: 20181112

REACTIONS (6)
  - Speech disorder [Unknown]
  - Joint dislocation [Unknown]
  - Stress [Not Recovered/Not Resolved]
  - Bone cyst [Unknown]
  - Exostosis [Unknown]
  - Sleep deficit [Recovering/Resolving]
